FAERS Safety Report 8394065-2 (Version None)
Quarter: 2012Q2

REPORT INFORMATION
  Report Type: 
  Country: None (occurrence: None)
  Receive Date: 20120530
  Receipt Date: 20120524
  Transmission Date: 20120825
  Serious: No
  Sender: FDA-Public Use
  Company Number: US-PFIZER INC-2012126238

PATIENT
  Sex: Female
  Weight: 65.8 kg

DRUGS (2)
  1. SYNTHROID [Concomitant]
     Indication: THYROID DISORDER
     Dosage: 50 UG, DAILY
     Route: 048
  2. AROMASIN [Suspect]
     Indication: BREAST CANCER
     Dosage: 25 MG, 1X/DAY
     Dates: start: 20120423, end: 20120521

REACTIONS (5)
  - INSOMNIA [None]
  - NIGHT SWEATS [None]
  - MALAISE [None]
  - HYPERSENSITIVITY [None]
  - URTICARIA [None]
